FAERS Safety Report 10648114 (Version 1)
Quarter: 2014Q4

REPORT INFORMATION
  Report Type: Spontaneous
  Country: US (occurrence: None)
  Receive Date: 20141211
  Receipt Date: 20141211
  Transmission Date: 20150529
  Serious: Yes (Other)
  Sender: FDA-Public Use
  Company Number: None

PATIENT
  Age: 59 Year
  Sex: Female
  Weight: 58.51 kg

DRUGS (1)
  1. PRAMIPEXOLE DIHYDROCHLORIDE. [Suspect]
     Active Substance: PRAMIPEXOLE DIHYDROCHLORIDE
     Indication: RESTLESS LEGS SYNDROME
     Dosage: TAKE 1 OR 2 TABLETS AT BEDTIME TAKEN BY MOUTH
     Dates: start: 20141125, end: 20141207

REACTIONS (4)
  - Nail disorder [None]
  - Onychoclasis [None]
  - Product substitution issue [None]
  - Alopecia [None]

NARRATIVE: CASE EVENT DATE: 20141207
